FAERS Safety Report 19717813 (Version 1)
Quarter: 2021Q3

REPORT INFORMATION
  Report Type: Spontaneous
  Country: US (occurrence: US)
  Receive Date: 20210819
  Receipt Date: 20210819
  Transmission Date: 20211014
  Serious: No
  Sender: FDA-Public Use
  Company Number: US-AUROBINDO-AUR-APL-2020-052752

PATIENT
  Age: 72 Year
  Sex: Male
  Weight: 76 kg

DRUGS (2)
  1. BELEODAQ [Suspect]
     Active Substance: BELINOSTAT
     Indication: T-CELL LYMPHOMA
     Dosage: FIVE DOSES, CYCLICAL
     Route: 065
     Dates: start: 201808
  2. BELEODAQ [Suspect]
     Active Substance: BELINOSTAT
     Dosage: INCREASED FROM 1900 MILLIGRAMS TO 2000 MILLIGRAMS
     Route: 065

REACTIONS (3)
  - Incorrect dose administered [Unknown]
  - Medication error [Unknown]
  - Weight increased [Unknown]
